FAERS Safety Report 5085920-X (Version None)
Quarter: 2006Q3

REPORT INFORMATION
  Report Type: 
  Country: None (occurrence: None)
  Receive Date: 20060817
  Receipt Date: 20060731
  Transmission Date: 20061208
  Serious: Yes (Death, Other)
  Sender: FDA-Public Use
  Company Number: 0610006

PATIENT
  Age: 1 Year
  Sex: Female
  Weight: 5 kg

DRUGS (2)
  1. ORFADIN [Suspect]
     Indication: TYROSINAEMIA
     Dosage: ORAL
     Route: 048
     Dates: start: 20050819, end: 20060212
  2. DOCUMENTS AND SETTING\JWN\DESKTOP\0610006FU1.PDF [Suspect]
     Dosage: DOCUMENTS

REACTIONS (3)
  - COMA HEPATIC [None]
  - LIVER DISORDER [None]
  - SEPSIS [None]
